FAERS Safety Report 9138691 (Version 2)
Quarter: 2013Q2

REPORT INFORMATION
  Report Type: Spontaneous
  Country: US (occurrence: US)
  Receive Date: 20130305
  Receipt Date: 20130416
  Transmission Date: 20140414
  Serious: Yes (Other)
  Sender: FDA-Public Use
  Company Number: US-BAYER-2013-026731

PATIENT
  Age: 21 Year
  Sex: Female
  Weight: 87.09 kg

DRUGS (1)
  1. MIRENA [Suspect]
     Indication: CONTRACEPTION
     Dosage: 20 MCG/24HR, CONT
     Route: 015
     Dates: start: 20121201, end: 20130110

REACTIONS (4)
  - Device dislocation [Recovered/Resolved]
  - Pregnancy with contraceptive device [Recovered/Resolved]
  - Abortion spontaneous [None]
  - Drug ineffective [None]
